FAERS Safety Report 21911257 (Version 2)
Quarter: 2023Q2

REPORT INFORMATION
  Report Type: Spontaneous
  Country: US (occurrence: US)
  Receive Date: 20230125
  Receipt Date: 20230511
  Transmission Date: 20230721
  Serious: Yes (Hospitalization, Other)
  Sender: FDA-Public Use
  Company Number: US-ALLERGAN-2301465US

PATIENT
  Sex: Female
  Weight: 69.399 kg

DRUGS (6)
  1. BOTOX [Suspect]
     Active Substance: ONABOTULINUMTOXINA
     Indication: Migraine
     Dosage: 20 UNITS, SINGLE
     Route: 030
     Dates: start: 20220930, end: 20220930
  2. BOTOX [Suspect]
     Active Substance: ONABOTULINUMTOXINA
     Dosage: 30 UNITS, SINGLE
     Route: 030
     Dates: start: 20220930, end: 20220930
  3. BOTOX [Suspect]
     Active Substance: ONABOTULINUMTOXINA
     Dosage: 30 UNITS, SINGLE
     Route: 030
     Dates: start: 20220930, end: 20220930
  4. BOTOX [Suspect]
     Active Substance: ONABOTULINUMTOXINA
     Dosage: UNK, SINGLE
     Dates: start: 20220708, end: 20220708
  5. BOTOX [Suspect]
     Active Substance: ONABOTULINUMTOXINA
     Dosage: UNK, SINGLE
     Dates: start: 20220422, end: 20220422
  6. BOTOX [Suspect]
     Active Substance: ONABOTULINUMTOXINA
     Dosage: UNK, SINGLE
     Dates: start: 20220204, end: 20220204

REACTIONS (5)
  - Cerebrovascular accident [Recovered/Resolved]
  - Blood pressure increased [Unknown]
  - Hypertension [Recovered/Resolved]
  - Muscle spasms [Unknown]
  - Migraine [Unknown]

NARRATIVE: CASE EVENT DATE: 20220930
